FAERS Safety Report 17245539 (Version 2)
Quarter: 2020Q1

REPORT INFORMATION
  Report Type: Report from Study
  Country: US (occurrence: US)
  Receive Date: 20200108
  Receipt Date: 20200316
  Transmission Date: 20200409
  Serious: No
  Sender: FDA-Public Use
  Company Number: NVSC2020US001999

PATIENT
  Age: 56 Year
  Sex: Female

DRUGS (2)
  1. GILENYA [Suspect]
     Active Substance: FINGOLIMOD HYDROCHLORIDE
     Dosage: 0.5 MG, QD (5 DAYS/WEEK)
     Route: 048
  2. GILENYA [Suspect]
     Active Substance: FINGOLIMOD HYDROCHLORIDE
     Indication: RELAPSING-REMITTING MULTIPLE SCLEROSIS
     Dosage: 0.5 MG, QD
     Route: 048
     Dates: start: 20191107

REACTIONS (6)
  - Malaise [Unknown]
  - Ear infection [Recovered/Resolved]
  - Sinusitis [Recovered/Resolved]
  - Prescribed underdose [Unknown]
  - Product administration error [Unknown]
  - Secretion discharge [Unknown]

NARRATIVE: CASE EVENT DATE: 202001
